FAERS Safety Report 6218473-0 (Version None)
Quarter: 2009Q2

REPORT INFORMATION
  Report Type: 
  Country: None (occurrence: None)
  Receive Date: 20090604
  Receipt Date: 20090604
  Transmission Date: 20091009
  Serious: Yes (Hospitalization)
  Sender: FDA-Public Use
  Company Number: None

PATIENT
  Age: 50 Year
  Sex: Female
  Weight: 77.1115 kg

DRUGS (2)
  1. RECLAST [Suspect]
     Indication: GASTROOESOPHAGEAL REFLUX DISEASE
     Dates: start: 20090529, end: 20090529
  2. RECLAST [Suspect]
     Indication: OSTEOPOROSIS
     Dates: start: 20090529, end: 20090529

REACTIONS (12)
  - ARTHRALGIA [None]
  - BODY TEMPERATURE INCREASED [None]
  - BONE PAIN [None]
  - CHEST PAIN [None]
  - CHILLS [None]
  - DEHYDRATION [None]
  - HYPOAESTHESIA [None]
  - IMPAIRED WORK ABILITY [None]
  - MYALGIA [None]
  - OEDEMA PERIPHERAL [None]
  - PARAESTHESIA [None]
  - TACHYCARDIA [None]
